FAERS Safety Report 5227040-7 (Version None)
Quarter: 2007Q1

REPORT INFORMATION
  Report Type: 
  Country: None (occurrence: None)
  Receive Date: 20070201
  Receipt Date: 20070201
  Transmission Date: 20070707
  Serious: No
  Sender: FDA-Public Use
  Company Number: None

PATIENT
  Sex: Female
  Weight: 70 kg

DRUGS (12)
  1. CARBOPLATIN [Suspect]
     Dosage: 597 MG
     Dates: end: 20070111
  2. TAXOL [Suspect]
     Dosage: 317 MG
     Dates: end: 20070111
  3. ASPIRIN [Concomitant]
  4. CALCIUM [Concomitant]
  5. COMPAZINE [Concomitant]
  6. DECADRON [Concomitant]
  7. FOSAMAX [Concomitant]
  8. LEVOTHYROXINE SODIUM [Concomitant]
  9. LIPITOR [Concomitant]
  10. VITAMIN CAP [Concomitant]
  11. PRILOSEC [Concomitant]
  12. VERAPAMIL [Concomitant]

REACTIONS (1)
  - NEUTROPHIL COUNT ABNORMAL [None]
